APPROVED DRUG PRODUCT: HYPERSTAT
Active Ingredient: DIAZOXIDE
Strength: 15MG/ML
Dosage Form/Route: INJECTABLE;INJECTION
Application: N016996 | Product #001
Applicant: SCHERING CORP SUB SCHERING PLOUGH CORP
Approved: Approved Prior to Jan 1, 1982 | RLD: No | RS: No | Type: DISCN